FAERS Safety Report 7846431-9 (Version None)
Quarter: 2011Q4

REPORT INFORMATION
  Report Type: 
  Country: None (occurrence: None)
  Receive Date: 20111025
  Receipt Date: 20111025
  Transmission Date: 20120403
  Serious: Yes (Hospitalization)
  Sender: FDA-Public Use
  Company Number: None

PATIENT
  Sex: Male
  Weight: 54.431 kg

DRUGS (1)
  1. AVELOX [Suspect]
     Indication: SINUSITIS

REACTIONS (5)
  - INSOMNIA [None]
  - PAIN IN EXTREMITY [None]
  - ACUTE HEPATIC FAILURE [None]
  - PYREXIA [None]
  - HAEMOLYTIC ANAEMIA [None]
